FAERS Safety Report 14503610 (Version 1)
Quarter: 2018Q1

REPORT INFORMATION
  Report Type: Spontaneous
  Country: US (occurrence: US)
  Receive Date: 20180208
  Receipt Date: 20180208
  Transmission Date: 20180509
  Serious: No
  Sender: FDA-Public Use
  Company Number: US-JNJFOC-20171238024

PATIENT
  Sex: Male

DRUGS (13)
  1. MULTIVITAMINS [Concomitant]
     Active Substance: VITAMINS
  2. CALCIUM [Concomitant]
     Active Substance: CALCIUM
  3. VITAMIN C [Concomitant]
     Active Substance: ASCORBIC ACID
  4. IMBRUVICA [Suspect]
     Active Substance: IBRUTINIB
     Indication: CHRONIC LYMPHOCYTIC LEUKAEMIA
     Route: 048
     Dates: start: 2017
  5. AMLODIPINE [Concomitant]
     Active Substance: AMLODIPINE BESYLATE
  6. FISH OIL [Concomitant]
     Active Substance: FISH OIL
  7. ALBUTEROL. [Concomitant]
     Active Substance: ALBUTEROL
  8. LEVOFLOXACIN. [Concomitant]
     Active Substance: LEVOFLOXACIN
     Route: 065
  9. IMBRUVICA [Suspect]
     Active Substance: IBRUTINIB
     Indication: CHRONIC LYMPHOCYTIC LEUKAEMIA
     Route: 048
     Dates: start: 20170315, end: 2017
  10. METOPROLOL. [Concomitant]
     Active Substance: METOPROLOL
  11. THIAMINE. [Concomitant]
     Active Substance: THIAMINE
  12. PROBIOTICS NOS [Concomitant]
     Active Substance: PROBIOTICS NOS
  13. GARLIC. [Concomitant]
     Active Substance: GARLIC

REACTIONS (1)
  - Rash [Unknown]
